FAERS Safety Report 24299562 (Version 2)
Quarter: 2024Q3

REPORT INFORMATION
  Report Type: Spontaneous
  Country: CN (occurrence: CN)
  Receive Date: 20240909
  Receipt Date: 20240918
  Transmission Date: 20241017
  Serious: Yes (Other)
  Sender: RANBAXY
  Company Number: CN-SUN PHARMACEUTICAL INDUSTRIES LTD-2024R1-466730

PATIENT
  Age: 67 Year
  Sex: Male

DRUGS (3)
  1. OXALIPLATIN [Suspect]
     Active Substance: OXALIPLATIN
     Indication: Gastric cancer
     Dosage: 130 MILLIGRAM/SQ. METER
     Route: 065
     Dates: start: 202303
  2. TISLELIZUMAB [Suspect]
     Active Substance: TISLELIZUMAB
     Indication: Gastric cancer
     Dosage: 200 MILLIGRAM
     Route: 065
  3. CAPECITABINE [Concomitant]
     Active Substance: CAPECITABINE
     Indication: Gastric cancer
     Dosage: 1000 MILLIGRAM/SQ. METER
     Route: 065

REACTIONS (6)
  - Hypersensitivity [Unknown]
  - Multiple organ dysfunction syndrome [Unknown]
  - Influenza [Recovered/Resolved]
  - Somnolence [Unknown]
  - Shock [Recovered/Resolved]
  - Cytokine release syndrome [Unknown]
